FAERS Safety Report 13464216 (Version 1)
Quarter: 2017Q2

REPORT INFORMATION
  Report Type: Spontaneous
  Country: US (occurrence: US)
  Receive Date: 20170420
  Receipt Date: 20170420
  Transmission Date: 20170830
  Serious: Yes (Other)
  Sender: FDA-Public Use
  Company Number: US-ROCHE-724548

PATIENT
  Age: 22 Year
  Sex: Male
  Weight: 107 kg

DRUGS (2)
  1. ATENOLOL. [Concomitant]
     Active Substance: ATENOLOL
     Route: 065
  2. ACCUTANE [Suspect]
     Active Substance: ISOTRETINOIN
     Indication: ACNE CYSTIC
     Route: 065
     Dates: start: 200005, end: 200011

REACTIONS (8)
  - Nausea [Unknown]
  - Crohn^s disease [Unknown]
  - Rectal haemorrhage [Unknown]
  - Cheilitis [Unknown]
  - Abdominal pain [Unknown]
  - Inflammatory bowel disease [Unknown]
  - Depression [Unknown]
  - Xerosis [Unknown]

NARRATIVE: CASE EVENT DATE: 20000803
